FAERS Safety Report 7333054-3 (Version None)
Quarter: 2011Q1

REPORT INFORMATION
  Report Type: 
  Country: None (occurrence: None)
  Receive Date: 20110304
  Receipt Date: 20110228
  Transmission Date: 20110831
  Serious: No
  Sender: FDA-Public Use
  Company Number: US-PFIZER INC-2010162213

PATIENT
  Sex: Female
  Weight: 68 kg

DRUGS (4)
  1. GLUCOTROL [Concomitant]
     Indication: DIABETES MELLITUS
     Dosage: UNK
  2. ACTOS [Concomitant]
     Indication: DIABETES MELLITUS
     Dosage: UNK
  3. LIPITOR [Suspect]
     Indication: BLOOD CHOLESTEROL INCREASED
     Dosage: 40 MG, DAILY
     Route: 048
     Dates: start: 20101001, end: 20101015
  4. ACCUPRIL [Concomitant]
     Indication: HYPERTENSION
     Dosage: UNK

REACTIONS (1)
  - MYALGIA [None]
